FAERS Safety Report 21990334 (Version 1)
Quarter: 2023Q1

REPORT INFORMATION
  Report Type: Spontaneous
  Country: US (occurrence: US)
  Receive Date: 20230214
  Receipt Date: 20230214
  Transmission Date: 20230418
  Serious: Yes (Other)
  Sender: FDA-Public Use
  Company Number: US-009507513-2302USA002534

PATIENT
  Sex: Male

DRUGS (1)
  1. KEYTRUDA [Suspect]
     Active Substance: PEMBROLIZUMAB
     Indication: Nasal sinus cancer
     Dosage: UNK
     Dates: start: 20230124

REACTIONS (3)
  - Pain [Unknown]
  - Ischaemic neuropathy [Unknown]
  - Epistaxis [Unknown]

NARRATIVE: CASE EVENT DATE: 20230101
